FAERS Safety Report 24443861 (Version 1)
Quarter: 2024Q4

REPORT INFORMATION
  Report Type: Spontaneous
  Country: US (occurrence: US)
  Receive Date: 20241016
  Receipt Date: 20241016
  Transmission Date: 20250115
  Serious: Yes (Hospitalization, Other)
  Sender: DR REDDYS
  Company Number: US-DRL-USA-SPO/USA/24/0015059

PATIENT
  Sex: Female

DRUGS (1)
  1. LENALIDOMIDE [Suspect]
     Active Substance: LENALIDOMIDE
     Indication: Product used for unknown indication
     Route: 065

REACTIONS (13)
  - Pneumonia [Unknown]
  - COVID-19 [Unknown]
  - Haemorrhage [Unknown]
  - Gingival bleeding [Unknown]
  - Immune system disorder [Unknown]
  - Pruritus [Unknown]
  - Arthralgia [Unknown]
  - Nausea [Unknown]
  - Epistaxis [Unknown]
  - Pustule [Unknown]
  - Asthenia [Unknown]
  - Fungal infection [Unknown]
  - Product quality issue [Unknown]

NARRATIVE: CASE EVENT DATE: 20200401
